FAERS Safety Report 17208865 (Version 1)
Quarter: 2019Q4

REPORT INFORMATION
  Report Type: Spontaneous
  Country: ES (occurrence: ES)
  Receive Date: 20191227
  Receipt Date: 20191227
  Transmission Date: 20200122
  Serious: Yes (Other)
  Sender: FDA-Public Use
  Company Number: ES-INTERCEPT-PM2019002316

PATIENT
  Sex: Female

DRUGS (1)
  1. OCALIVA [Suspect]
     Active Substance: OBETICHOLIC ACID
     Indication: PRIMARY BILIARY CHOLANGITIS
     Dosage: 5 MG, QD
     Dates: start: 201911, end: 201911

REACTIONS (9)
  - Dysphagia [Recovered/Resolved]
  - Back pain [Recovered/Resolved]
  - Skin lesion [Recovered/Resolved]
  - Headache [Recovered/Resolved]
  - Lip oedema [Recovered/Resolved]
  - Groin pain [Recovered/Resolved]
  - Rash [Recovered/Resolved]
  - Dizziness [Recovered/Resolved]
  - Oral pain [Recovered/Resolved]

NARRATIVE: CASE EVENT DATE: 201911
